FAERS Safety Report 21850545 (Version 3)
Quarter: 2023Q1

REPORT INFORMATION
  Report Type: Report from Study
  Country: MX (occurrence: MX)
  Receive Date: 20230111
  Receipt Date: 20230317
  Transmission Date: 20230417
  Serious: Yes (Other)
  Sender: FDA-Public Use
  Company Number: MX-002147023-NVSC2023MX005293

PATIENT
  Age: 79 Year
  Sex: Female
  Weight: 51 kg

DRUGS (3)
  1. EXFORGE HCT [Suspect]
     Active Substance: AMLODIPINE BESYLATE\HYDROCHLOROTHIAZIDE\VALSARTAN
     Indication: Hypertension
     Dosage: 0.5 DOSAGE FORM (10/320/25 MG) QD, STARTED APPROXIMATELY 4 YEARS AGO
     Route: 048
  2. EXFORGE HCT [Suspect]
     Active Substance: AMLODIPINE BESYLATE\HYDROCHLOROTHIAZIDE\VALSARTAN
     Dosage: 0.5 DOSAGE FORM (10/320/25 MG) QD, STARTED APPROXIMATELY 4 YEARS AGO
     Route: 048
  3. LEVOTHYROXINE SODIUM [Concomitant]
     Active Substance: LEVOTHYROXINE SODIUM
     Indication: Hypothyroidism
     Dosage: 1 DOSAGE FORM, QD (75 MG), STARTED ON 20 YEARS AGO (DOES NOT KNOW EXACT DATE)
     Route: 048

REACTIONS (5)
  - Deafness [Not Recovered/Not Resolved]
  - Memory impairment [Unknown]
  - Dizziness [Recovered/Resolved]
  - Blood pressure abnormal [Recovered/Resolved]
  - Wrong technique in product usage process [Not Recovered/Not Resolved]

NARRATIVE: CASE EVENT DATE: 20230305
